FAERS Safety Report 8354970-X (Version None)
Quarter: 2012Q2

REPORT INFORMATION
  Report Type: 
  Country: None (occurrence: None)
  Receive Date: 20120511
  Receipt Date: 20120507
  Transmission Date: 20120825
  Serious: Yes (Hospitalization)
  Sender: FDA-Public Use
  Company Number: US-BAYER-2012-019449

PATIENT
  Age: 31 Year
  Sex: Female

DRUGS (2)
  1. YAZ [Suspect]
     Indication: ACNE
     Dosage: UNK
     Dates: start: 20090101, end: 20100101
  2. YAZ [Suspect]
     Indication: CONTRACEPTION

REACTIONS (3)
  - PAIN [None]
  - GALLBLADDER DISORDER [None]
  - MENTAL DISORDER [None]
